FAERS Safety Report 16081262 (Version 1)
Quarter: 2019Q1

REPORT INFORMATION
  Report Type: Spontaneous
  Country: SE (occurrence: SE)
  Receive Date: 20190316
  Receipt Date: 20190316
  Transmission Date: 20190418
  Serious: Yes (Other)
  Sender: FDA-Public Use
  Company Number: SE-ACCORD-112063

PATIENT

DRUGS (2)
  1. CARBOPLATIN ACCORD [Suspect]
     Active Substance: CARBOPLATIN
     Indication: SMALL CELL LUNG CANCER EXTENSIVE STAGE
     Dosage: FIRST AND SECOND LINE TREATMENT
  2. IRINOTECAN HYDROCHLORIDE ACCORD [Suspect]
     Active Substance: IRINOTECAN HYDROCHLORIDE
     Indication: SMALL CELL LUNG CANCER EXTENSIVE STAGE
     Dosage: FIRST AND SECOND LINE TREATMENT

REACTIONS (2)
  - Off label use [Unknown]
  - Disease progression [Unknown]
